FAERS Safety Report 24058280 (Version 1)
Quarter: 2024Q3

REPORT INFORMATION
  Report Type: Report from Study
  Country: US (occurrence: US)
  Receive Date: 20240708
  Receipt Date: 20240708
  Transmission Date: 20241016
  Serious: Yes (Other)
  Sender: JOHNSON AND JOHNSON
  Company Number: US-JNJFOC-20240707142

PATIENT
  Age: 51 Year
  Sex: Male

DRUGS (1)
  1. SPRAVATO [Suspect]
     Active Substance: ESKETAMINE
     Indication: Depression
     Dates: start: 20240701

REACTIONS (4)
  - Mental impairment [Unknown]
  - Autoscopy [Unknown]
  - Dizziness [Unknown]
  - Thirst [Unknown]

NARRATIVE: CASE EVENT DATE: 20240701
